FAERS Safety Report 9797552 (Version 2)
Quarter: 2014Q1

REPORT INFORMATION
  Report Type: Spontaneous
  Country: AR (occurrence: None)
  Receive Date: 20131231
  Receipt Date: 20140321
  Transmission Date: 20141002
  Serious: Yes (Hospitalization, Other)
  Sender: FDA-Public Use
  Company Number: VAL_02877_2013

PATIENT
  Sex: Female

DRUGS (1)
  1. METHYLERGOMETRINE MALEATE [Suspect]
     Indication: PREMATURE SEPARATION OF PLACENTA
     Dosage: DF
     Route: 048
     Dates: start: 2007, end: 2007

REACTIONS (5)
  - Caesarean section [None]
  - Premature delivery [None]
  - Uterine atony [None]
  - Procedural haemorrhage [None]
  - Exposure during pregnancy [None]
